FAERS Safety Report 6551725-3 (Version None)
Quarter: 2010Q1

REPORT INFORMATION
  Report Type: 
  Country: None (occurrence: None)
  Receive Date: 20100126
  Receipt Date: 20100119
  Transmission Date: 20100710
  Serious: Yes (Death, Other)
  Sender: FDA-Public Use
  Company Number: US-ELI_LILLY_AND_COMPANY-US201001003846

PATIENT
  Sex: Male

DRUGS (1)
  1. HUMALOG MIX 50/50 [Suspect]
     Indication: DIABETES MELLITUS
     Dosage: UNK, UNK
     Dates: start: 20090101

REACTIONS (5)
  - AGGRESSION [None]
  - BLOOD GLUCOSE DECREASED [None]
  - DEATH [None]
  - FALL [None]
  - URINARY INCONTINENCE [None]
